FAERS Safety Report 24915614 (Version 1)
Quarter: 2025Q1

REPORT INFORMATION
  Report Type: Spontaneous
  Country: US (occurrence: US)
  Receive Date: 20250203
  Receipt Date: 20250203
  Transmission Date: 20250408
  Serious: Yes (Other)
  Sender: STRIDES
  Company Number: US-STRIDES ARCOLAB LIMITED-2025SP001472

PATIENT
  Age: 54 Year
  Sex: Male

DRUGS (8)
  1. HALOPERIDOL [Suspect]
     Active Substance: HALOPERIDOL
     Indication: Bipolar I disorder
     Route: 065
  2. TRAZODONE [Suspect]
     Active Substance: TRAZODONE HYDROCHLORIDE
     Indication: Bipolar I disorder
     Route: 065
  3. FLUOXETINE [Suspect]
     Active Substance: FLUOXETINE HYDROCHLORIDE
     Indication: Bipolar I disorder
     Route: 065
  4. ZOLPIDEM [Suspect]
     Active Substance: ZOLPIDEM TARTRATE
     Indication: Bipolar I disorder
     Route: 065
  5. MIRTAZAPINE [Suspect]
     Active Substance: MIRTAZAPINE
     Indication: Bipolar I disorder
     Route: 065
  6. LORAZEPAM [Concomitant]
     Active Substance: LORAZEPAM
     Indication: Bipolar I disorder
     Route: 065
  7. OLANZAPINE [Concomitant]
     Active Substance: OLANZAPINE
     Indication: Bipolar I disorder
     Route: 065
  8. LURASIDONE [Concomitant]
     Active Substance: LURASIDONE
     Indication: Bipolar I disorder
     Route: 065

REACTIONS (3)
  - Condition aggravated [Recovered/Resolved]
  - Drug ineffective [Unknown]
  - Off label use [Unknown]
